FAERS Safety Report 5979620-9 (Version None)
Quarter: 2008Q4

REPORT INFORMATION
  Report Type: 
  Country: None (occurrence: None)
  Receive Date: 20081204
  Receipt Date: 20081124
  Transmission Date: 20090506
  Serious: Yes (Hospitalization)
  Sender: FDA-Public Use
  Company Number: JP-WATSON-2008-06978

PATIENT

DRUGS (4)
  1. ATENOLOL [Interacting]
     Indication: HYPERTENSION
     Dosage: 50 MG, DAILY
     Route: 048
  2. THALIDOMIDE [Suspect]
     Indication: DRUG USE FOR UNKNOWN INDICATION
     Dosage: 100 MG, DAILY
  3. HYDROCHLOROTHIAZIDE (WATSON LABORATORIES) [Concomitant]
     Indication: HYPERTENSION
     Dosage: UNK
  4. FUROSEMIDE (WATSON LABORATORIES) [Concomitant]
     Indication: HYPERTENSION
     Dosage: UNK

REACTIONS (3)
  - DRUG INTERACTION [None]
  - SINUS BRADYCARDIA [None]
  - SYNCOPE [None]
